FAERS Safety Report 8460438-2 (Version None)
Quarter: 2012Q2

REPORT INFORMATION
  Report Type: 
  Country: None (occurrence: None)
  Receive Date: 20120622
  Receipt Date: 20120121
  Transmission Date: 20120825
  Serious: Yes (Life-Threatening, Hospitalization, Other)
  Sender: FDA-Public Use
  Company Number: CHPA2012US012806

PATIENT
  Sex: Male

DRUGS (1)
  1. EXCEDRIN (MIGRAINE) [Suspect]
     Dosage: UNK, UNK
     Route: 048

REACTIONS (6)
  - HAEMATOCHEZIA [None]
  - HAEMORRHAGE [None]
  - GASTROINTESTINAL INJURY [None]
  - OESOPHAGEAL RUPTURE [None]
  - FOREIGN BODY [None]
  - HAEMATEMESIS [None]
